FAERS Safety Report 24874907 (Version 1)
Quarter: 2025Q1

REPORT INFORMATION
  Report Type: Report from Study
  Country: US (occurrence: US)
  Receive Date: 20250122
  Receipt Date: 20250122
  Transmission Date: 20250409
  Serious: Yes (Other)
  Sender: OTSUKA
  Company Number: US-OTSUKA-2024_034298

PATIENT
  Sex: Male

DRUGS (2)
  1. TOLVAPTAN [Suspect]
     Active Substance: TOLVAPTAN
     Indication: Congenital cystic kidney disease
     Route: 065
     Dates: start: 20211013
  2. TOLVAPTAN [Suspect]
     Active Substance: TOLVAPTAN
     Dosage: 1 DF, QD (1 DOSE DAILY)
     Route: 065
     Dates: start: 20241219

REACTIONS (2)
  - Retinal artery occlusion [Recovered/Resolved]
  - Intentional dose omission [Not Recovered/Not Resolved]

NARRATIVE: CASE EVENT DATE: 20241219
